FAERS Safety Report 8077290-X (Version None)
Quarter: 2012Q1

REPORT INFORMATION
  Report Type: 
  Country: None (occurrence: None)
  Receive Date: 20120127
  Receipt Date: 20120123
  Transmission Date: 20120608
  Serious: Yes (Hospitalization, Other)
  Sender: FDA-Public Use
  Company Number: US-ACTELION-A-US2009-32229

PATIENT

DRUGS (18)
  1. METHOTREXATE [Concomitant]
  2. POTASSIUM CHLORIDE [Concomitant]
  3. TRACLEER [Suspect]
     Indication: PULMONARY ARTERIAL HYPERTENSION
     Dosage: 31.25 MG, QD
     Route: 048
  4. TRACLEER [Suspect]
     Dosage: UNK MG, BID
     Route: 048
     Dates: start: 20091202
  5. TRACLEER [Suspect]
     Dosage: 31.25 MG, BID
     Route: 048
     Dates: start: 20100712
  6. DARVOCET [Concomitant]
  7. REMICADE [Concomitant]
  8. TRACLEER [Suspect]
     Dosage: 31.25 MG, BID
     Route: 048
     Dates: start: 20080723
  9. ALBUTEROL [Concomitant]
  10. ADVAIR DISKUS 100/50 [Concomitant]
  11. HYDROXYUREA [Concomitant]
  12. FOLIC ACID [Concomitant]
  13. TRACLEER [Suspect]
     Dosage: 62.5 MG, BID
     Route: 048
     Dates: start: 20100201, end: 20100609
  14. REGLAN [Concomitant]
  15. MS CONTIN [Concomitant]
  16. PRILOSEC [Concomitant]
  17. METHADONE HCL [Concomitant]
  18. EXJADE [Concomitant]

REACTIONS (11)
  - BLOOD BILIRUBIN INCREASED [None]
  - ASPARTATE AMINOTRANSFERASE INCREASED [None]
  - TRANSFUSION [None]
  - DEHYDRATION [None]
  - DIARRHOEA [None]
  - PNEUMONIA [None]
  - SICKLE CELL ANAEMIA WITH CRISIS [None]
  - HAEMOGLOBIN DECREASED [None]
  - LIVER FUNCTION TEST ABNORMAL [None]
  - PAIN [None]
  - ARTERIOSCLEROSIS [None]
